FAERS Safety Report 23444138 (Version 3)
Quarter: 2024Q4

REPORT INFORMATION
  Report Type: Spontaneous
  Country: US (occurrence: US)
  Receive Date: 20240125
  Receipt Date: 20241218
  Transmission Date: 20250114
  Serious: Yes (Other)
  Sender: PFIZER
  Company Number: US-PFIZER INC-202201308412

PATIENT
  Age: 71 Year
  Sex: Female
  Weight: 78.93 kg

DRUGS (2)
  1. IBRANCE [Suspect]
     Active Substance: PALBOCICLIB
     Indication: Breast cancer female
     Dosage: 125MG 1 TABLET DAILY FOR 21 DAYS THEN OFF 7 DAYS
     Route: 048
     Dates: start: 202201
  2. IBRANCE [Suspect]
     Active Substance: PALBOCICLIB
     Dosage: TAKE 100 MG BY MOUTH DAILY, X 21 DAYS, THEN OFF 7 DAYS FOR A 28 DAY CYCLE
     Route: 048

REACTIONS (1)
  - Cerebrovascular accident [Recovering/Resolving]
